FAERS Safety Report 17339057 (Version 2)
Quarter: 2023Q2

REPORT INFORMATION
  Report Type: Spontaneous
  Country: US (occurrence: US)
  Receive Date: 20200129
  Receipt Date: 20230504
  Transmission Date: 20230722
  Serious: No
  Sender: FDA-Public Use
  Company Number: US-JNJFOC-20200144381

PATIENT
  Age: 14 Year
  Sex: Male

DRUGS (2)
  1. RISPERIDONE [Suspect]
     Active Substance: RISPERIDONE
     Indication: Product used for unknown indication
     Route: 048
     Dates: start: 2009, end: 2011
  2. RISPERIDONE [Suspect]
     Active Substance: RISPERIDONE
     Indication: Product used for unknown indication
     Route: 065

REACTIONS (2)
  - Gynaecomastia [Unknown]
  - Emotional disorder [Unknown]

NARRATIVE: CASE EVENT DATE: 20110420
